APPROVED DRUG PRODUCT: PAROXETINE HYDROCHLORIDE
Active Ingredient: PAROXETINE HYDROCHLORIDE
Strength: EQ 30MG BASE
Dosage Form/Route: TABLET;ORAL
Application: A076968 | Product #003 | TE Code: AB
Applicant: OXFORD PHARMACEUTICALS LLC
Approved: Jun 21, 2010 | RLD: No | RS: No | Type: RX